FAERS Safety Report 15678216 (Version 1)
Quarter: 2018Q4

REPORT INFORMATION
  Report Type: Spontaneous
  Country: FR (occurrence: FR)
  Receive Date: 20181201
  Receipt Date: 20181201
  Transmission Date: 20190205
  Serious: Yes (Life-Threatening, Hospitalization)
  Sender: FDA-Public Use
  Company Number: FR-TEVA-2018-FR-980591

PATIENT
  Age: 65 Year
  Sex: Female
  Weight: 89.1 kg

DRUGS (11)
  1. TEMERIT [Concomitant]
     Active Substance: NEBIVOLOL
     Route: 065
  2. FEROGRAD VITAMINE C [Concomitant]
     Active Substance: ASCORBIC ACID\FERROUS SULFATE
     Route: 065
  3. COLCHICINE OPOCALCIUM 1 MG, COMPRIM? [Suspect]
     Active Substance: COLCHICINE
     Indication: GOUT
     Dosage: .5 MILLIGRAM DAILY;
     Route: 048
     Dates: start: 20180426, end: 20180831
  4. IRBESARTAN. [Concomitant]
     Active Substance: IRBESARTAN
     Route: 065
  5. ESOMEPRAZOLE. [Concomitant]
     Active Substance: ESOMEPRAZOLE MAGNESIUM
     Route: 065
  6. DEDROGYL [Concomitant]
     Active Substance: CALCIFEDIOL
     Route: 065
  7. SIMVASTATINE [Concomitant]
     Active Substance: SIMVASTATIN
     Route: 065
  8. DOLIPRANE [Concomitant]
     Active Substance: ACETAMINOPHEN
     Route: 065
  9. LEXOMIL 12 MG, COMPRIM? [Concomitant]
     Active Substance: BROMAZEPAM
  10. ALLOPURINOL. [Suspect]
     Active Substance: ALLOPURINOL
     Indication: GOUT
     Route: 048
     Dates: start: 20180830, end: 20180904
  11. LASILIX [Concomitant]
     Active Substance: FUROSEMIDE
     Route: 065

REACTIONS (5)
  - Acute kidney injury [Recovering/Resolving]
  - Rash morbilliform [Recovered/Resolved]
  - Eosinophilia [Not Recovered/Not Resolved]
  - Hypersensitivity [Recovered/Resolved]
  - Hepatocellular injury [Recovered/Resolved]

NARRATIVE: CASE EVENT DATE: 20180831
